FAERS Safety Report 6736990-1 (Version None)
Quarter: 2010Q2

REPORT INFORMATION
  Report Type: 
  Country: None (occurrence: None)
  Receive Date: 20100523
  Receipt Date: 20100308
  Transmission Date: 20101027
  Serious: No
  Sender: FDA-Public Use
  Company Number: US-ALLERGAN-1003067US

PATIENT
  Age: 67 Year
  Sex: Male

DRUGS (5)
  1. COMBIGAN [Suspect]
     Indication: INTRAOCULAR PRESSURE INCREASED
     Dosage: 3 GTT, QAM
     Route: 047
     Dates: start: 20100101
  2. COMBIGAN [Suspect]
     Dosage: 1-2 GTTS
     Route: 047
  3. LIPITOR [Concomitant]
     Indication: BLOOD CHOLESTEROL INCREASED
     Dosage: 20 MG, QD
  4. LISINOPRIL [Concomitant]
     Indication: HYPERTENSION
     Dosage: 5 MG, QD
  5. ALLOPURINOL [Concomitant]
     Dosage: 50 MG, QD

REACTIONS (1)
  - MUSCULAR WEAKNESS [None]
